FAERS Safety Report 21754795 (Version 1)
Quarter: 2022Q4

REPORT INFORMATION
  Report Type: Spontaneous
  Country: CN (occurrence: CN)
  Receive Date: 20221220
  Receipt Date: 20221220
  Transmission Date: 20230113
  Serious: Yes (Hospitalization)
  Sender: FDA-Public Use
  Company Number: CN-MYLANLABS-2022M1140391

PATIENT
  Age: 29 Year
  Sex: Male
  Weight: 80 kg

DRUGS (3)
  1. NORVASC [Suspect]
     Active Substance: AMLODIPINE BESYLATE
     Indication: Hypertension
     Dosage: 7 DOSAGE FORM, QD
     Route: 048
     Dates: start: 20221208, end: 20221208
  2. VALPROATE SODIUM [Suspect]
     Active Substance: VALPROATE SODIUM
     Indication: Anxiety
     Dosage: 30 DOSAGE FORM, QD
     Route: 048
     Dates: start: 20221208, end: 20221208
  3. FLUOXETINE HYDROCHLORIDE [Suspect]
     Active Substance: FLUOXETINE HYDROCHLORIDE
     Indication: Anxiety
     Dosage: 13 DOSAGE FORM, QD
     Route: 048
     Dates: start: 20221208, end: 20221208

REACTIONS (2)
  - Dizziness [Recovered/Resolved]
  - Intentional overdose [Recovered/Resolved]

NARRATIVE: CASE EVENT DATE: 20221208
